FAERS Safety Report 9219228 (Version 1)
Quarter: 2013Q2

REPORT INFORMATION
  Report Type: Spontaneous
  Country: US (occurrence: None)
  Receive Date: 20130404
  Receipt Date: 20130404
  Transmission Date: 20140414
  Serious: Yes (Other)
  Sender: FDA-Public Use
  Company Number: SYM-2013-02329

PATIENT
  Sex: 0

DRUGS (8)
  1. FLUOROURACIL (FLUOROURACIL)(FLUOROURACIL) [Suspect]
     Indication: ADENOCARCINOMA PANCREAS
  2. OXALIPLATIN (OXALIPLATIN) [Suspect]
     Indication: ADENOCARCINOMA PANCREAS
  3. IRINOTECAN (IRINOTECAN) [Suspect]
     Indication: ADENOCARCINOMA PANCREAS
  4. LEUCOVORIN [Suspect]
     Indication: ADENOCARCINOMA PANCREAS
  5. PEGFILGRASTIM (PEGFILGRASTIM)(PEGFILGRASTIM) [Concomitant]
  6. PALONOSETRON (PALONOSETRON)(PALONOSETRON) [Concomitant]
  7. APREPITANT (APREPITANT)(APREPITANT) [Concomitant]
  8. DEXAMETHASONE (DEXAMTHASONE)(DEXAMETHASONE) [Concomitant]

REACTIONS (1)
  - Vomiting [None]
